APPROVED DRUG PRODUCT: ACETAMINOPHEN AND IBUPROFEN
Active Ingredient: ACETAMINOPHEN; IBUPROFEN
Strength: 250MG;125MG
Dosage Form/Route: TABLET;ORAL
Application: A219053 | Product #001
Applicant: TARO PHARMACEUTICAL INDUSTRIES LTD
Approved: Jan 2, 2026 | RLD: No | RS: No | Type: OTC